FAERS Safety Report 14700517 (Version 1)
Quarter: 2018Q1

REPORT INFORMATION
  Report Type: Spontaneous
  Country: TW (occurrence: TW)
  Receive Date: 20180330
  Receipt Date: 20180330
  Transmission Date: 20180509
  Serious: Yes (Hospitalization, Other)
  Sender: FDA-Public Use
  Company Number: TW-BAUSCH-BL-2018-007271

PATIENT
  Age: 2 Year
  Sex: Male

DRUGS (4)
  1. CEFTRIAXONE. [Interacting]
     Active Substance: CEFTRIAXONE
     Indication: PYREXIA
     Route: 042
  2. CEPHALEXIN. [Interacting]
     Active Substance: CEPHALEXIN
     Indication: PYREXIA
     Route: 065
  3. DICLOFENAC SODIUM. [Suspect]
     Active Substance: DICLOFENAC SODIUM
     Indication: PYREXIA
     Dosage: 1.6 MG KGE-1 DAYE-1, DAILY FOR 3 WEEKS
     Route: 065
  4. PARACETAMOL [Interacting]
     Active Substance: ACETAMINOPHEN
     Indication: PYREXIA
     Route: 065

REACTIONS (7)
  - Klebsiella infection [Recovering/Resolving]
  - Beta haemolytic streptococcal infection [Recovering/Resolving]
  - Peritonitis [Recovering/Resolving]
  - Drug interaction [Recovering/Resolving]
  - Abdominal abscess [Recovering/Resolving]
  - Large intestine perforation [Recovering/Resolving]
  - Escherichia infection [Recovering/Resolving]
